FAERS Safety Report 18961390 (Version 1)
Quarter: 2021Q1

REPORT INFORMATION
  Report Type: Spontaneous
  Country: US (occurrence: US)
  Receive Date: 20210302
  Receipt Date: 20210302
  Transmission Date: 20210420
  Serious: No
  Sender: FDA-Public Use
  Company Number: US-THERAPEUTICSMD-2020TMD05308

PATIENT
  Sex: Female

DRUGS (2)
  1. ANNOVERA [Suspect]
     Active Substance: ETHINYL ESTRADIOL\SEGESTERONE ACETATE
     Dosage: 1 RING
     Route: 067
     Dates: start: 202011, end: 202011
  2. ANNOVERA [Suspect]
     Active Substance: ETHINYL ESTRADIOL\SEGESTERONE ACETATE
     Dosage: 1 RING
     Route: 067
     Dates: start: 202011, end: 202011

REACTIONS (3)
  - Drug hypersensitivity [Unknown]
  - Reaction to excipient [Unknown]
  - Urticaria [Unknown]

NARRATIVE: CASE EVENT DATE: 202011
